FAERS Safety Report 13635119 (Version 1)
Quarter: 2017Q2

REPORT INFORMATION
  Report Type: Spontaneous
  Country: US (occurrence: US)
  Receive Date: 20170608
  Receipt Date: 20170608
  Transmission Date: 20170830
  Serious: Yes (Life-Threatening, Hospitalization)
  Sender: FDA-Public Use
  Company Number: None

PATIENT
  Age: 48 Year
  Sex: Female
  Weight: 72 kg

DRUGS (19)
  1. ALBUTEROL. [Concomitant]
     Active Substance: ALBUTEROL
  2. CYMBALTA [Concomitant]
     Active Substance: DULOXETINE HYDROCHLORIDE
  3. ZYRTEC [Concomitant]
     Active Substance: CETIRIZINE HYDROCHLORIDE
  4. NEBUPENT [Suspect]
     Active Substance: PENTAMIDINE ISETHIONATE
     Indication: PROPHYLAXIS
     Dosage: QUANTITY:1 VIAL;OTHER FREQUENCY:ONCE A MONTH;?
     Route: 055
     Dates: start: 20161102, end: 20170606
  5. ACETAMIOPHEN-CAFF-BUTALBITAL (FIORICET) [Concomitant]
  6. DIPHENOXYLATE-ATROPINE (LOMOTIL) [Concomitant]
  7. PENTAMIDINE [Concomitant]
     Active Substance: PENTAMIDINE
  8. BENADRYL [Concomitant]
     Active Substance: DIPHENHYDRAMINE HYDROCHLORIDE
  9. CLONAZEPAM. [Concomitant]
     Active Substance: CLONAZEPAM
  10. OXYCODONE [Concomitant]
     Active Substance: OXYCODONE
  11. NEURONTIN [Concomitant]
     Active Substance: GABAPENTIN
  12. INFLIXIMUB [Concomitant]
  13. TYLENOL [Concomitant]
     Active Substance: ACETAMINOPHEN
  14. VITAMIN D3 [Concomitant]
     Active Substance: CHOLECALCIFEROL
  15. NEBUPENT [Suspect]
     Active Substance: PENTAMIDINE ISETHIONATE
     Indication: PNEUMOCYSTIS JIROVECII PNEUMONIA
     Dosage: QUANTITY:1 VIAL;OTHER FREQUENCY:ONCE A MONTH;?
     Route: 055
     Dates: start: 20161102, end: 20170606
  16. COLESTIPOL [Concomitant]
     Active Substance: COLESTIPOL
  17. METHTYLPREDNISOLONE SOD SUCC [Concomitant]
  18. AZATHIOPRINE. [Concomitant]
     Active Substance: AZATHIOPRINE
  19. VITAMIN B COMPLEX [Concomitant]
     Active Substance: CYANOCOBALAMIN\DEXPANTHENOL\NIACINAMIDE\PYRIDOXINE HYDROCHLORIDE\RIBOFLAVIN 5^-PHOSPHATE SODIUM\THIAMINE HYDROCHLORIDE\VITAMIN B COMPLEX

REACTIONS (5)
  - Wheezing [None]
  - Blood lactic acid increased [None]
  - Dyspnoea [None]
  - Stridor [None]
  - Respiratory acidosis [None]

NARRATIVE: CASE EVENT DATE: 20170606
